FAERS Safety Report 19979720 (Version 1)
Quarter: 2021Q4

REPORT INFORMATION
  Report Type: Spontaneous
  Country: RU (occurrence: RU)
  Receive Date: 20211020
  Receipt Date: 20211020
  Transmission Date: 20220303
  Serious: Yes (Other)
  Sender: FDA-Public Use
  Company Number: RU-SUN PHARMACEUTICAL INDUSTRIES LTD-2021R1-314518

PATIENT
  Age: 65 Year
  Sex: Female

DRUGS (4)
  1. DOXORUBICIN [Suspect]
     Active Substance: DOXORUBICIN
     Indication: Uterine leiomyosarcoma
     Dosage: 25 MILLIGRAM/SQ. METER, ON DAYS 1 TO 3
     Route: 042
     Dates: start: 2019
  2. DOXORUBICIN [Suspect]
     Active Substance: DOXORUBICIN
     Dosage: 18.7 MILLIGRAM/SQ. METER, ON DAYS 1 TO 3
     Route: 042
     Dates: start: 2019
  3. IFOSFAMIDE [Suspect]
     Active Substance: IFOSFAMIDE
     Indication: Uterine leiomyosarcoma
     Dosage: 2500 MILLIGRAM/SQ. METER, DAILY, ON DAYS 1 TO 4
     Route: 042
     Dates: start: 2019
  4. IFOSFAMIDE [Suspect]
     Active Substance: IFOSFAMIDE
     Dosage: 1875 MILLIGRAM/SQ. METER, DAILY, ON DAYS 1 TO 4
     Route: 042
     Dates: start: 2019

REACTIONS (3)
  - Disease progression [Unknown]
  - Neutropenia [Unknown]
  - Thrombocytopenia [Unknown]

NARRATIVE: CASE EVENT DATE: 20190101
